FAERS Safety Report 10150007 (Version 1)
Quarter: 2014Q2

REPORT INFORMATION
  Report Type: Spontaneous
  Country: US (occurrence: US)
  Receive Date: 20140502
  Receipt Date: 20140502
  Transmission Date: 20141212
  Serious: No
  Sender: FDA-Public Use
  Company Number: US-009507513-1404USA014614

PATIENT
  Age: 62 Year
  Sex: Male

DRUGS (1)
  1. NASONEX [Suspect]
     Indication: RESPIRATORY DISORDER
     Dosage: 1 TIME EVERY 3 HOURS
     Route: 045
     Dates: start: 201304

REACTIONS (2)
  - Dyspnoea [Not Recovered/Not Resolved]
  - Overdose [Unknown]
